FAERS Safety Report 24794431 (Version 2)
Quarter: 2025Q2

REPORT INFORMATION
  Report Type: Spontaneous
  Country: US (occurrence: US)
  Receive Date: 20241231
  Receipt Date: 20250501
  Transmission Date: 20250717
  Serious: Yes (Death, Other)
  Sender: RANBAXY
  Company Number: US-SUN PHARMACEUTICAL INDUSTRIES LTD-2024R1-487035

PATIENT
  Age: 65 Year
  Sex: Female

DRUGS (1)
  1. TEMOZOLOMIDE [Suspect]
     Active Substance: TEMOZOLOMIDE
     Indication: Radiotherapy
     Route: 065

REACTIONS (3)
  - Cytomegalovirus infection [Fatal]
  - Neutropenia [Fatal]
  - Thrombocytopenia [Fatal]
